FAERS Safety Report 12624533 (Version 1)
Quarter: 2016Q3

REPORT INFORMATION
  Report Type: Spontaneous
  Country: US (occurrence: None)
  Receive Date: 20160804
  Receipt Date: 20160804
  Transmission Date: 20161109
  Serious: Yes (Disabling)
  Sender: FDA-Public Use
  Company Number: None

PATIENT
  Age: 46 Year
  Sex: Female
  Weight: 90.72 kg

DRUGS (9)
  1. ZYRTEC [Concomitant]
     Active Substance: CETIRIZINE HYDROCHLORIDE
  2. COLLAGEN [Concomitant]
     Active Substance: COLLAGEN
  3. RESERVATROL [Concomitant]
  4. PSYLLIUM HUSK [Concomitant]
     Active Substance: PSYLLIUM HUSK
  5. VITAMIN C [Concomitant]
     Active Substance: ASCORBIC ACID
  6. COLOSTRUM HUMAN [Concomitant]
     Active Substance: HUMAN COLOSTRUM
  7. BELVIQ [Suspect]
     Active Substance: LORCASERIN HYDROCHLORIDE
     Indication: WEIGHT DECREASED
     Dosage: 60 TABLETS
     Route: 048
     Dates: start: 20160714, end: 20160715
  8. I-METHYLFOLATE [Concomitant]
  9. PHOSPHATADYLSERINE [Concomitant]

REACTIONS (3)
  - Dizziness [None]
  - Nausea [None]
  - Hypoglycaemia [None]

NARRATIVE: CASE EVENT DATE: 20160714
